FAERS Safety Report 7265735-4 (Version None)
Quarter: 2011Q1

REPORT INFORMATION
  Report Type: 
  Country: None (occurrence: None)
  Receive Date: 20110131
  Receipt Date: 20110118
  Transmission Date: 20110831
  Serious: Yes (Hospitalization, Other)
  Sender: FDA-Public Use
  Company Number: RO-ELI_LILLY_AND_COMPANY-RO201012001211

PATIENT
  Sex: Male

DRUGS (3)
  1. FOLIC ACID [Concomitant]
  2. ALIMTA [Suspect]
     Indication: LUNG ADENOCARCINOMA STAGE III
     Dosage: 500 MG, UNK
     Route: 065
     Dates: start: 20101108
  3. VIT B12 [Concomitant]

REACTIONS (2)
  - CONVULSION [None]
  - HYPERTENSION [None]
